FAERS Safety Report 10935450 (Version 2)
Quarter: 2015Q4

REPORT INFORMATION
  Report Type: Spontaneous
  Country: US (occurrence: US)
  Receive Date: 20150320
  Receipt Date: 20151006
  Transmission Date: 20160304
  Serious: Yes (Death, Other)
  Sender: FDA-Public Use
  Company Number: US-GLAXOSMITHKLINE-US2015GSK036697

PATIENT
  Sex: Male
  Weight: 85.5 kg

DRUGS (6)
  1. MEKINIST [Suspect]
     Active Substance: TRAMETINIB DIMETHYL SULFOXIDE
     Indication: ANGIOSARCOMA
     Dosage: UNK
     Dates: start: 20141010, end: 20141011
  2. SUNITINIB [Suspect]
     Active Substance: SUNITINIB
  3. MEKINIST [Suspect]
     Active Substance: TRAMETINIB DIMETHYL SULFOXIDE
     Indication: SOFT TISSUE SARCOMA
     Dosage: 2 MG, QD
     Route: 048
     Dates: start: 20141004, end: 20141007
  4. HYDROMORPHONE [Concomitant]
     Active Substance: HYDROMORPHONE
  5. PAZOPANIB [Suspect]
     Active Substance: PAZOPANIB
  6. LORAZEPAM. [Concomitant]
     Active Substance: LORAZEPAM

REACTIONS (5)
  - Disease progression [Fatal]
  - Lung disorder [Unknown]
  - Drug ineffective [Unknown]
  - Metastatic neoplasm [Fatal]
  - Malignant neoplasm progression [Fatal]
